FAERS Safety Report 6376074-8 (Version None)
Quarter: 2009Q3

REPORT INFORMATION
  Report Type: 
  Country: None (occurrence: None)
  Receive Date: 20090924
  Receipt Date: 20090917
  Transmission Date: 20100115
  Serious: Yes (Other)
  Sender: FDA-Public Use
  Company Number: DE-GILEAD-2009-0024316

PATIENT
  Sex: Female

DRUGS (3)
  1. HEPSERA [Suspect]
     Indication: HEPATITIS B
  2. TIMOX [Concomitant]
  3. ZONEGRAN [Concomitant]

REACTIONS (2)
  - DRUG INTERACTION [None]
  - VIRAL LOAD INCREASED [None]
